FAERS Safety Report 4907980-6 (Version None)
Quarter: 2006Q1

REPORT INFORMATION
  Report Type: 
  Country: None (occurrence: None)
  Receive Date: 20060210
  Receipt Date: 20050915
  Transmission Date: 20060701
  Serious: Yes (Hospitalization)
  Sender: FDA-Public Use
  Company Number: 2005AP04992

PATIENT
  Age: 20644 Day
  Sex: Male
  Weight: 68.9 kg

DRUGS (32)
  1. IRESSA [Suspect]
     Indication: LUNG ADENOCARCINOMA
     Route: 048
     Dates: start: 20050907, end: 20050914
  2. EXCEGRAN [Concomitant]
     Indication: CONVULSION
     Route: 048
     Dates: start: 20030528
  3. PHENOBARBITAL TAB [Concomitant]
     Indication: CONVULSION
     Route: 048
     Dates: start: 20030528
  4. SINGULAIR [Concomitant]
     Indication: ASTHMA
     Route: 048
     Dates: start: 20030619
  5. UNIPHYL [Concomitant]
     Indication: ASTHMA
     Route: 048
     Dates: start: 20030619
  6. TAKEPRON [Concomitant]
     Indication: GASTRIC ULCER
     Route: 048
     Dates: start: 20050112
  7. NOVAMIN [Concomitant]
     Indication: NAUSEA
     Route: 048
     Dates: start: 20050613
  8. MAGNESIUM OXIDE [Concomitant]
     Indication: CONSTIPATION
     Route: 048
     Dates: start: 20050613
  9. DUROTEP [Concomitant]
     Indication: PAIN
     Dates: start: 20050627
  10. VOLTAREN GEL [Concomitant]
     Indication: PAIN
     Dates: start: 20050815
  11. LAXOBERON [Concomitant]
     Indication: CONSTIPATION
     Route: 048
     Dates: start: 20050820
  12. MUCOSTA [Concomitant]
     Indication: GASTRIC ULCER
     Route: 048
     Dates: start: 20050822
  13. MYONAL [Concomitant]
     Indication: ARTHRALGIA
     Route: 048
     Dates: start: 20050822
  14. CYANOCOBALAMIN [Concomitant]
     Indication: NEUROPATHY PERIPHERAL
     Route: 048
     Dates: start: 20050822, end: 20050101
  15. MOBIC [Concomitant]
     Indication: ARTHRALGIA
     Route: 048
     Dates: start: 20050823
  16. HARNAL [Concomitant]
     Indication: DYSURIA
     Route: 048
     Dates: start: 20050823
  17. OPSO [Concomitant]
     Indication: CANCER PAIN
     Route: 048
     Dates: start: 20050826
  18. PREDONINE [Concomitant]
     Indication: ASTHMA
     Route: 048
     Dates: start: 20050901
  19. SEREVENT [Concomitant]
     Indication: ASTHMA
     Route: 055
     Dates: start: 20050901
  20. LENDORMIN [Concomitant]
     Indication: INSOMNIA
     Route: 048
     Dates: start: 20050906
  21. WARFARIN [Concomitant]
     Indication: THROMBOSIS
     Route: 048
     Dates: start: 20050914
  22. MORPHINE [Concomitant]
     Indication: CANCER PAIN
     Route: 048
  23. PURSENNID [Concomitant]
     Indication: CONSTIPATION
     Route: 048
  24. FLUTIDE DISKUS [Concomitant]
     Indication: ASTHMA
     Route: 055
  25. VOLTAREN [Concomitant]
     Indication: CANCER PAIN
  26. CISPLATIN [Concomitant]
     Dosage: 4 CYCLES
     Dates: start: 19981201
  27. VINDESINE [Concomitant]
     Dosage: 4 CYCLES
     Dates: start: 19981201
  28. RADIATION THERAPY [Concomitant]
     Dosage: HILIUM OF LEFT LUNG 60 GY
     Dates: start: 19981204, end: 19990122
  29. RADIATION THERAPY [Concomitant]
     Dosage: GAMMA KNIFE THERAPY TO AREA IN RIGHT OCCIPITAL LOBE 17 GY
     Dates: start: 20021219
  30. RADIATION THERAPY [Concomitant]
     Dosage: LATERAL IRRADITAION TO TH 10-12 30GY
     Dates: start: 20050113, end: 20050126
  31. CARBOPLATIN [Concomitant]
     Dosage: 2 CYCLES
     Dates: start: 20050201, end: 20050308
  32. GEMCITABINE [Concomitant]
     Dosage: 4 CYCLES
     Dates: start: 20050201, end: 20050516

REACTIONS (5)
  - HAEMORRHAGIC INFARCTION [None]
  - INFECTION [None]
  - INTERSTITIAL LUNG DISEASE [None]
  - LYMPHANGIOSIS CARCINOMATOSA [None]
  - PULMONARY EMBOLISM [None]
